FAERS Safety Report 22069328 (Version 2)
Quarter: 2023Q2

REPORT INFORMATION
  Report Type: Spontaneous
  Country: US (occurrence: US)
  Receive Date: 20230307
  Receipt Date: 20230510
  Transmission Date: 20230721
  Serious: Yes (Other)
  Sender: FDA-Public Use
  Company Number: US-PFIZER INC-202201358639

PATIENT
  Age: 72 Year
  Sex: Female
  Weight: 108.86 kg

DRUGS (1)
  1. PREMARIN [Suspect]
     Active Substance: ESTROGENS, CONJUGATED
     Indication: Vulvovaginal injury
     Dosage: 0.625 CONJUGATED ESTROGEN VAGINAL CREAM 30G

REACTIONS (5)
  - Drug dependence [Unknown]
  - Feeling abnormal [Unknown]
  - Nervousness [Unknown]
  - Pain [Unknown]
  - Intentional product misuse [Unknown]
